FAERS Safety Report 5717710-6 (Version None)
Quarter: 2008Q2

REPORT INFORMATION
  Report Type: 
  Country: None (occurrence: None)
  Receive Date: 20080425
  Receipt Date: 20080411
  Transmission Date: 20081010
  Serious: Yes (Other)
  Sender: FDA-Public Use
  Company Number: SK-AMGEN-US266260

PATIENT
  Age: 55 Year
  Sex: Male

DRUGS (3)
  1. ENBREL [Suspect]
     Indication: PSORIATIC ARTHROPATHY
     Dosage: 50 MG, FREQUENCY UNSPECIFIED
     Route: 058
     Dates: start: 20080101, end: 20080213
  2. METHOTREXATE [Concomitant]
     Route: 065
  3. FRAXIPARIN [Concomitant]
     Route: 065

REACTIONS (1)
  - ASTHMA [None]
